FAERS Safety Report 16677122 (Version 1)
Quarter: 2019Q3

REPORT INFORMATION
  Report Type: Spontaneous
  Country: US (occurrence: US)
  Receive Date: 20190621
  Receipt Date: 20190621
  Transmission Date: 20191004
  Serious: Yes (Other)
  Sender: FDA-Public Use
  Company Number: None

PATIENT
  Age: 66 Year
  Sex: Female

DRUGS (17)
  1. SPIRONOLACTONE. [Concomitant]
     Active Substance: SPIRONOLACTONE
  2. VENTOLIN LHFA [Concomitant]
  3. ADVAIR DISKUS [Concomitant]
     Active Substance: FLUTICASONE PROPIONATE\SALMETEROL XINAFOATE
  4. BETAMETHASONE. [Concomitant]
     Active Substance: BETAMETHASONE
  5. SOTALOL. [Concomitant]
     Active Substance: SOTALOL
  6. OMEPRAZOLE. [Concomitant]
     Active Substance: OMEPRAZOLE
  7. HYDROCORTISONE. [Concomitant]
     Active Substance: HYDROCORTISONE
  8. SPIRIVA RESPIMAT [Concomitant]
     Active Substance: TIOTROPIUM BROMIDE
  9. SILDENAFIL. [Concomitant]
     Active Substance: SILDENAFIL
  10. GABAPENTIN. [Concomitant]
     Active Substance: GABAPENTIN
  11. RESTASIS [Concomitant]
     Active Substance: CYCLOSPORINE
  12. OPSUMIT [Suspect]
     Active Substance: MACITENTAN
     Indication: PULMONARY ARTERIAL HYPERTENSION
     Route: 048
     Dates: start: 201611
  13. FUROSEMIDE. [Concomitant]
     Active Substance: FUROSEMIDE
  14. SIMVASTATIN. [Concomitant]
     Active Substance: SIMVASTATIN
  15. METHOTREXATE. [Concomitant]
     Active Substance: METHOTREXATE
  16. PRADAXA [Concomitant]
     Active Substance: DABIGATRAN ETEXILATE MESYLATE
  17. TYVASO [Concomitant]
     Active Substance: TREPROSTINIL

REACTIONS (1)
  - Herpes zoster [None]

NARRATIVE: CASE EVENT DATE: 20190618
